FAERS Safety Report 7343728-6 (Version None)
Quarter: 2011Q1

REPORT INFORMATION
  Report Type: 
  Country: None (occurrence: None)
  Receive Date: 20110310
  Receipt Date: 20101206
  Transmission Date: 20110831
  Serious: No
  Sender: FDA-Public Use
  Company Number: A0897940A

PATIENT
  Age: 77 Year
  Sex: Female

DRUGS (4)
  1. NICORETTE [Suspect]
     Dates: start: 20101206
  2. NICORETTE [Suspect]
  3. NICORETTE [Suspect]
  4. NICORETTE (MINT) [Suspect]

REACTIONS (1)
  - INTENTIONAL DRUG MISUSE [None]
